FAERS Safety Report 14783782 (Version 2)
Quarter: 2018Q2

REPORT INFORMATION
  Report Type: Report from Study
  Country: CZ (occurrence: CZ)
  Receive Date: 20180420
  Receipt Date: 20180621
  Transmission Date: 20180711
  Serious: Yes (Death, Hospitalization, Other)
  Sender: FDA-Public Use
  Company Number: CZ-JNJFOC-20180421013

PATIENT
  Age: 71 Year
  Sex: Male
  Weight: 94 kg

DRUGS (17)
  1. ACETYLSALICYLIC ACID [Suspect]
     Active Substance: ASPIRIN
     Indication: THROMBOSIS PROPHYLAXIS
     Route: 065
     Dates: start: 20161010, end: 20170105
  2. ATORVASTATIN [Concomitant]
     Active Substance: ATORVASTATIN
     Route: 065
  3. METFORMIN [Concomitant]
     Active Substance: METFORMIN HYDROCHLORIDE
     Indication: TYPE 2 DIABETES MELLITUS
     Route: 065
  4. CONTROLOC [Concomitant]
     Active Substance: PANTOPRAZOLE SODIUM
     Route: 048
     Dates: start: 20161005
  5. AMLODIPINE MALEATE [Concomitant]
     Active Substance: AMLODIPINE MALEATE
     Route: 048
  6. PRESTARIUM [Concomitant]
     Active Substance: PERINDOPRIL
     Route: 048
     Dates: start: 20161010, end: 20161010
  7. ANOPYRIN [Concomitant]
     Active Substance: ASPIRIN
     Route: 048
     Dates: start: 20161007, end: 20161009
  8. ACETYLSALICYLIC ACID [Concomitant]
     Active Substance: ASPIRIN
     Indication: BLOOD DISORDER
     Route: 048
     Dates: start: 20070523, end: 20161006
  9. METOPROLOL SUCCINATE. [Concomitant]
     Active Substance: METOPROLOL SUCCINATE
     Route: 048
  10. FURON [Concomitant]
     Active Substance: FUROSEMIDE
     Route: 048
     Dates: end: 20161006
  11. AMILORIDE HYDROCHLORIDE. [Concomitant]
     Active Substance: AMILORIDE HYDROCHLORIDE
     Route: 048
     Dates: start: 20161111, end: 20170105
  12. KALNORMIN [Concomitant]
     Active Substance: POTASSIUM CHLORIDE
     Route: 048
     Dates: start: 20161007, end: 20161010
  13. RIVAROXABAN [Suspect]
     Active Substance: RIVAROXABAN
     Indication: THROMBOSIS PROPHYLAXIS
     Route: 048
     Dates: start: 20161011, end: 20180308
  14. RIVAROXABAN [Suspect]
     Active Substance: RIVAROXABAN
     Indication: AORTIC VALVE REPLACEMENT
     Route: 048
     Dates: start: 20161011, end: 20180308
  15. ACETYLSALICYLIC ACID [Suspect]
     Active Substance: ASPIRIN
     Indication: AORTIC VALVE REPLACEMENT
     Route: 065
     Dates: start: 20161010, end: 20170105
  16. VEROSPIRON [Concomitant]
     Active Substance: SPIRONOLACTONE
     Route: 048
     Dates: end: 20161010
  17. AMPRILAN [Concomitant]
     Active Substance: RAMIPRIL
     Route: 065
     Dates: start: 20161011

REACTIONS (2)
  - Haemoglobin decreased [Fatal]
  - Hepatic neoplasm [Not Recovered/Not Resolved]

NARRATIVE: CASE EVENT DATE: 20180308
